FAERS Safety Report 5143778-4 (Version None)
Quarter: 2006Q4

REPORT INFORMATION
  Report Type: 
  Country: None (occurrence: None)
  Receive Date: 20061106
  Receipt Date: 20061025
  Transmission Date: 20070319
  Serious: Yes (Hospitalization)
  Sender: FDA-Public Use
  Company Number: JP-JNJFOC-20061006956

PATIENT
  Age: 31 Year
  Sex: Male

DRUGS (2)
  1. RISPERDAL [Suspect]
     Indication: DRUG USE FOR UNKNOWN INDICATION
     Route: 048
  2. BIPERIDEN HYDROCHLORIDE TAB [Concomitant]

REACTIONS (1)
  - RHABDOMYOLYSIS [None]
